FAERS Safety Report 9285250 (Version 1)
Quarter: 2013Q2

REPORT INFORMATION
  Report Type: Spontaneous
  Country: US (occurrence: US)
  Receive Date: 20130513
  Receipt Date: 20130513
  Transmission Date: 20140414
  Serious: Yes (Hospitalization)
  Sender: FDA-Public Use
  Company Number: US-SANOFI-AVENTIS-2013SA047088

PATIENT
  Age: 62 Year
  Sex: Male
  Weight: 82 kg

DRUGS (3)
  1. PLAVIX [Suspect]
  2. LISINOPRIL [Concomitant]
     Dates: start: 20110625
  3. CARVEDILOL [Concomitant]
     Dates: start: 20110625

REACTIONS (1)
  - Hospitalisation [Unknown]
